FAERS Safety Report 19270078 (Version 4)
Quarter: 2025Q3

REPORT INFORMATION
  Report Type: Spontaneous
  Country: CA (occurrence: CA)
  Receive Date: 20210518
  Receipt Date: 20250809
  Transmission Date: 20251021
  Serious: Yes (Hospitalization, Other)
  Sender: ALEXION PHARMACEUTICALS
  Company Number: 2021A421726

PATIENT
  Age: 63 Year
  Sex: Male
  Weight: 98 kg

DRUGS (11)
  1. ROSUVASTATIN CALCIUM [Suspect]
     Active Substance: ROSUVASTATIN CALCIUM
     Indication: Dyslipidaemia
  2. AMIODARONE [Suspect]
     Active Substance: AMIODARONE
     Indication: Atrial fibrillation
     Route: 065
  3. BUSULFAN [Suspect]
     Active Substance: BUSULFAN
     Indication: Surgical preconditioning
     Dosage: 4 MILLIGRAM/KILOGRAM, QD
     Route: 065
     Dates: start: 20200915, end: 20200921
  4. CYCLOSPORINE [Suspect]
     Active Substance: CYCLOSPORINE
     Indication: Prophylaxis against transplant rejection
     Route: 065
  5. FLUDARABINE [Suspect]
     Active Substance: FLUDARABINE PHOSPHATE
     Indication: Surgical preconditioning
     Route: 065
     Dates: start: 20200915, end: 20200921
  6. MICAFUNGIN SODIUM [Suspect]
     Active Substance: MICAFUNGIN SODIUM
     Indication: Prophylaxis against transplant rejection
     Route: 065
  7. PENTAMIDINE MESYLATE [Suspect]
     Active Substance: PENTAMIDINE MESYLATE
     Indication: Prophylaxis against transplant rejection
     Route: 065
  8. TAFAMIDIS MEGLUMINE [Suspect]
     Active Substance: TAFAMIDIS MEGLUMINE
     Indication: Cardiac amyloidosis
     Dosage: 61 MILLIGRAM, QD
     Dates: start: 20190517
  9. ZOPICLONE [Suspect]
     Active Substance: ZOPICLONE
     Indication: Insomnia
     Route: 065
  10. GABAPENTIN [Suspect]
     Active Substance: GABAPENTIN
     Indication: Insomnia
     Route: 065
  11. VALTREX [Suspect]
     Active Substance: VALACYCLOVIR HYDROCHLORIDE
     Indication: Prophylaxis against transplant rejection
     Route: 065

REACTIONS (10)
  - Atrial fibrillation [Unknown]
  - Atrial flutter [Unknown]
  - Blood culture positive [Recovering/Resolving]
  - Cardiac failure [Unknown]
  - Hyperlipidaemia [Unknown]
  - Insomnia [Unknown]
  - Intervertebral disc protrusion [Unknown]
  - Pyrexia [Recovering/Resolving]
  - Sepsis [Recovered/Resolved]
  - Spinal stenosis [Unknown]

NARRATIVE: CASE EVENT DATE: 20200104
